FAERS Safety Report 4669080-2 (Version None)
Quarter: 2005Q2

REPORT INFORMATION
  Report Type: 
  Country: None (occurrence: None)
  Receive Date: 20050523
  Receipt Date: 20050124
  Transmission Date: 20051028
  Serious: Yes (Disabling, Other)
  Sender: FDA-Public Use
  Company Number: PHRM2005FR00666

PATIENT
  Age: 57 Year
  Sex: Female

DRUGS (10)
  1. ZOMETA [Suspect]
     Indication: METASTASES TO BONE
     Dosage: 10 COURSES OF 10 MG
     Route: 042
     Dates: start: 20030531, end: 20031208
  2. ZOMETA [Suspect]
     Dosage: 8 COURSES OF 4 MG
     Route: 042
     Dates: start: 20040126, end: 20040630
  3. ZOMETA [Suspect]
     Route: 042
     Dates: start: 20040801
  4. GEMZAR [Suspect]
     Route: 042
  5. HERCEPTIN [Suspect]
     Route: 042
  6. PREVISCAN [Concomitant]
  7. SEROPRAM [Concomitant]
  8. ORAP [Concomitant]
  9. LEPTICUR [Concomitant]
  10. NORDAZ [Concomitant]

REACTIONS (8)
  - GINGIVAL ULCERATION [None]
  - IMPAIRED HEALING [None]
  - LOCALISED INFECTION [None]
  - LYMPHADENOPATHY [None]
  - OSTEONECROSIS [None]
  - PRIMARY SEQUESTRUM [None]
  - SEQUESTRECTOMY [None]
  - TOOTH LOSS [None]
